FAERS Safety Report 12889054 (Version 1)
Quarter: 2016Q4

REPORT INFORMATION
  Report Type: Spontaneous
  Country: CA (occurrence: CA)
  Receive Date: 20161027
  Receipt Date: 20161027
  Transmission Date: 20170207
  Serious: Yes (Other)
  Sender: FDA-Public Use
  Company Number: CA-SUNOVION-2016SUN002578

PATIENT
  Age: 67 Year
  Sex: Female
  Weight: 127.89 kg

DRUGS (3)
  1. LATUDA [Suspect]
     Active Substance: LURASIDONE HYDROCHLORIDE
     Indication: SCHIZOPHRENIA
     Dosage: 40 MG, QD
     Route: 048
     Dates: start: 20150227, end: 20150303
  2. CLOMIPRAMINE [Concomitant]
     Active Substance: CLOMIPRAMINE
     Dosage: 75 MG, HS
  3. FLUVOXAMINE [Concomitant]
     Active Substance: FLUVOXAMINE
     Dosage: 100 MG, HS

REACTIONS (2)
  - Rash maculo-papular [Recovered/Resolved]
  - Hypersensitivity [Recovered/Resolved]

NARRATIVE: CASE EVENT DATE: 20150303
